FAERS Safety Report 7523588-0 (Version None)
Quarter: 2011Q2

REPORT INFORMATION
  Report Type: 
  Country: None (occurrence: None)
  Receive Date: 20110603
  Receipt Date: 20110526
  Transmission Date: 20111010
  Serious: Yes (Death)
  Sender: FDA-Public Use
  Company Number: US-CELGENEUS-163-21880-11053514

PATIENT
  Sex: Male

DRUGS (9)
  1. CARAFATE [Concomitant]
     Route: 065
  2. FOLTX [Concomitant]
     Route: 065
  3. ATENOLOL [Concomitant]
     Route: 065
  4. METFORMIN HCL [Concomitant]
     Route: 065
  5. BENTYL [Concomitant]
     Route: 065
  6. REVLIMID [Suspect]
     Indication: MULTIPLE MYELOMA
     Dosage: 12.5 MILLIGRAM
     Route: 048
     Dates: start: 20091201, end: 20110101
  7. JANTOVEN [Concomitant]
     Route: 065
  8. LIPITOR [Concomitant]
     Route: 065
  9. LASIX [Concomitant]
     Route: 065

REACTIONS (1)
  - DEATH [None]
